FAERS Safety Report 5587733-9 (Version None)
Quarter: 2007Q4

REPORT INFORMATION
  Report Type: 
  Country: None (occurrence: None)
  Receive Date: 20071210
  Receipt Date: 20070730
  Transmission Date: 20080405
  Serious: Yes (Other)
  Sender: FDA-Public Use
  Company Number: SPV1-2007-02787

PATIENT
  Sex: Male

DRUGS (5)
  1. ADDERALL 10 [Suspect]
     Indication: ATTENTION DEFICIT/HYPERACTIVITY DISORDER
     Dosage: SEE IMAGE
     Route: 048
     Dates: start: 20020101, end: 20020101
  2. ADDERALL 10 [Suspect]
     Indication: ATTENTION DEFICIT/HYPERACTIVITY DISORDER
     Dosage: SEE IMAGE
     Route: 048
     Dates: start: 20020101, end: 20030201
  3. ADDERALL 10 [Suspect]
     Indication: ATTENTION DEFICIT/HYPERACTIVITY DISORDER
     Dosage: SEE IMAGE
     Route: 048
     Dates: start: 20030201, end: 20030201
  4. SEROQUEL [Concomitant]
  5. MULTI-VITAMIN [Concomitant]

REACTIONS (7)
  - ANOREXIA [None]
  - APATHY [None]
  - DYSPNOEA [None]
  - HYPERSENSITIVITY [None]
  - RASH MACULAR [None]
  - TIC [None]
  - VOMITING [None]
